FAERS Safety Report 17775562 (Version 1)
Quarter: 2020Q2

REPORT INFORMATION
  Report Type: Report from Study
  Country: US (occurrence: US)
  Receive Date: 20200513
  Receipt Date: 20200513
  Transmission Date: 20200714
  Serious: No
  Sender: FDA-Public Use
  Company Number: US-ACADIA PHARMACEUTICALS INC.-ACA-2020-PIM-001017

PATIENT
  Age: 86 Year
  Sex: Female
  Weight: 54 kg

DRUGS (1)
  1. NUPLAZID [Suspect]
     Active Substance: PIMAVANSERIN TARTRATE
     Indication: PARKINSON^S DISEASE
     Dosage: UNK, QD
     Route: 065
     Dates: end: 2020

REACTIONS (11)
  - Lower limb fracture [Unknown]
  - Disorientation [Unknown]
  - Hallucination, visual [Unknown]
  - Lethargy [Unknown]
  - Musculoskeletal stiffness [Unknown]
  - Confusional state [Unknown]
  - Fall [Unknown]
  - Dementia [Unknown]
  - Delusion [Unknown]
  - Weight increased [Unknown]
  - Hallucination [Unknown]

NARRATIVE: CASE EVENT DATE: 202001
